FAERS Safety Report 5213707-3 (Version None)
Quarter: 2007Q1

REPORT INFORMATION
  Report Type: 
  Country: None (occurrence: None)
  Receive Date: 20070119
  Receipt Date: 20070109
  Transmission Date: 20070707
  Serious: Yes (Hospitalization, Other)
  Sender: FDA-Public Use
  Company Number: US-PFIZER INC-2007003166

PATIENT
  Sex: Female
  Weight: 73.9 kg

DRUGS (9)
  1. CHANTIX [Suspect]
     Indication: SMOKING CESSATION THERAPY
     Dates: start: 20060801, end: 20060901
  2. NEURONTIN [Suspect]
     Indication: FIBROMYALGIA
     Dates: start: 20030101, end: 20040101
  3. ALL OTHER THERAPEUTIC PRODUCTS [Suspect]
  4. CHEMOTHERAPY NOS [Suspect]
     Indication: BREAST CANCER
  5. TOPROL-XL [Suspect]
  6. LEVOXYL [Concomitant]
  7. FISH OIL [Concomitant]
  8. ASPIRIN [Concomitant]
  9. NEXIUM [Concomitant]

REACTIONS (14)
  - ASTHENIA [None]
  - BREAST CANCER [None]
  - CHOLECYSTECTOMY [None]
  - DIARRHOEA [None]
  - DIZZINESS [None]
  - FATIGUE [None]
  - HYPERHIDROSIS [None]
  - HYPOTHYROIDISM [None]
  - ILL-DEFINED DISORDER [None]
  - MEMORY IMPAIRMENT [None]
  - MUSCLE SPASMS [None]
  - NIGHTMARE [None]
  - VOMITING [None]
  - WEIGHT DECREASED [None]
